FAERS Safety Report 10004163 (Version 2)
Quarter: 2014Q2

REPORT INFORMATION
  Report Type: Spontaneous
  Country: US (occurrence: US)
  Receive Date: 20140312
  Receipt Date: 20140611
  Transmission Date: 20141212
  Serious: No
  Sender: FDA-Public Use
  Company Number: US-INCYTE CORPORATION-2014IN000326

PATIENT
  Sex: Male
  Weight: 93.42 kg

DRUGS (6)
  1. JAKAFI [Suspect]
     Indication: MYELOFIBROSIS
     Dosage: 10 MG, BID
     Route: 048
     Dates: start: 20120408
  2. JAKAFI [Suspect]
     Dosage: 10 MG, BID
     Route: 048
     Dates: start: 201401
  3. NASONEX [Concomitant]
     Dosage: 50 MCG
     Route: 045
  4. FINASTERIDE [Concomitant]
     Dosage: 5 MG
  5. ZANTAC [Concomitant]
  6. PROCRIT                            /00909301/ [Concomitant]
     Dosage: UNK, PRN

REACTIONS (2)
  - Decreased appetite [Recovered/Resolved]
  - Depression [Recovered/Resolved]
